FAERS Safety Report 6873917-6 (Version None)
Quarter: 2010Q3

REPORT INFORMATION
  Report Type: 
  Country: None (occurrence: None)
  Receive Date: 20100723
  Receipt Date: 20090615
  Transmission Date: 20110219
  Serious: No
  Sender: FDA-Public Use
  Company Number: US-PFIZER INC-2009186140

PATIENT
  Sex: Female
  Weight: 63.492 kg

DRUGS (3)
  1. CHANTIX [Suspect]
     Indication: SMOKING CESSATION THERAPY
     Dosage: 0.5 MG, 1X/DAY
     Dates: start: 20090312, end: 20090314
  2. SEROQUEL [Concomitant]
     Indication: BORDERLINE PERSONALITY DISORDER
     Dosage: UNK
  3. FLUOXETINE [Concomitant]
     Indication: BORDERLINE PERSONALITY DISORDER
     Dosage: UNK

REACTIONS (10)
  - ABDOMINAL PAIN [None]
  - COLD SWEAT [None]
  - CONSTIPATION [None]
  - DIARRHOEA [None]
  - HYPERHIDROSIS [None]
  - INFLUENZA LIKE ILLNESS [None]
  - LETHARGY [None]
  - NAUSEA [None]
  - SEDATION [None]
  - VOMITING [None]
